FAERS Safety Report 20510915 (Version 2)
Quarter: 2022Q2

REPORT INFORMATION
  Report Type: Spontaneous
  Country: CZ (occurrence: CZ)
  Receive Date: 20220224
  Receipt Date: 20220606
  Transmission Date: 20220720
  Serious: Yes (Life-Threatening, Hospitalization, Other)
  Sender: FDA-Public Use
  Company Number: CZ-NOVARTISPH-NVSC2022CZ040522

PATIENT
  Age: 4 Month
  Sex: Male

DRUGS (16)
  1. TOPIRAMATE [Suspect]
     Active Substance: TOPIRAMATE
     Indication: Seizure
     Dosage: UNK
     Route: 065
  2. ZONISAMIDE [Suspect]
     Active Substance: ZONISAMIDE
     Indication: Seizure
     Dosage: UNK
     Route: 065
  3. LEVETIRACETAM [Suspect]
     Active Substance: LEVETIRACETAM
     Indication: Myoclonic epilepsy
     Dosage: UNK
     Route: 042
  4. MIDAZOLAM [Suspect]
     Active Substance: MIDAZOLAM
     Indication: Myoclonic epilepsy
     Dosage: UNK
     Route: 042
  5. PHENOBARBITAL [Suspect]
     Active Substance: PHENOBARBITAL
     Indication: Myoclonic epilepsy
     Dosage: UNK
     Route: 042
  6. PHENYTOIN [Suspect]
     Active Substance: PHENYTOIN
     Indication: Seizure
     Dosage: UNK
     Route: 065
  7. STIRIPENTOL [Suspect]
     Active Substance: STIRIPENTOL
     Indication: Seizure
     Dosage: UNK
     Route: 065
  8. VALPROIC ACID [Suspect]
     Active Substance: VALPROIC ACID
     Indication: Seizure
     Dosage: UNK
     Route: 065
  9. THIOPENTAL [Suspect]
     Active Substance: THIOPENTAL
     Indication: Seizure
     Dosage: UNK
     Route: 065
  10. CLONAZEPAM [Suspect]
     Active Substance: CLONAZEPAM
     Indication: Seizure
     Dosage: UNK
     Route: 065
  11. VIGABATRIN [Suspect]
     Active Substance: VIGABATRIN
     Indication: Seizure
     Dosage: UNK
     Route: 065
  12. POTASSIUM BROMIDE [Suspect]
     Active Substance: POTASSIUM BROMIDE
     Indication: Seizure
     Dosage: UNK
     Route: 065
  13. DIAZEPAM [Suspect]
     Active Substance: DIAZEPAM
     Indication: Seizure
     Dosage: UNK
     Route: 065
  14. PYRIDOXINE [Concomitant]
     Active Substance: PYRIDOXINE
     Indication: Product used for unknown indication
     Dosage: UNK (HIGH DOSES)
     Route: 065
  15. CHLORAL HYDRATE [Concomitant]
     Active Substance: CHLORAL HYDRATE
     Indication: Product used for unknown indication
     Dosage: UNK
     Route: 065
  16. PROPOFOL [Concomitant]
     Active Substance: PROPOFOL
     Indication: Seizure
     Dosage: UNK
     Route: 065

REACTIONS (10)
  - Drug ineffective [Unknown]
  - Respiratory failure [Unknown]
  - Myoclonic epilepsy [Unknown]
  - Clonic convulsion [Unknown]
  - Status epilepticus [Unknown]
  - Eye movement disorder [Unknown]
  - Multiple-drug resistance [Unknown]
  - General physical health deterioration [Unknown]
  - Hypotonia [Unknown]
  - Off label use [Unknown]
